FAERS Safety Report 8362495-0 (Version None)
Quarter: 2012Q2

REPORT INFORMATION
  Report Type: 
  Country: None (occurrence: None)
  Receive Date: 20120516
  Receipt Date: 20120503
  Transmission Date: 20120825
  Serious: Yes (Hospitalization)
  Sender: FDA-Public Use
  Company Number: US-RB-038864-12

PATIENT
  Age: 23 Year
  Sex: Female

DRUGS (2)
  1. DELSYM [Suspect]
     Indication: PRODUCT USED FOR UNKNOWN INDICATION
     Dosage: DRANK THE ENTIRE BOTTLE
     Route: 048
     Dates: start: 20120423
  2. VAPODROPS [Concomitant]
     Indication: PRODUCT USED FOR UNKNOWN INDICATION
     Dosage: PATIENT HAS TAKEN 5 VAPODROPS

REACTIONS (6)
  - COUGH [None]
  - ACCIDENTAL OVERDOSE [None]
  - HYPOAESTHESIA [None]
  - DIZZINESS [None]
  - HEADACHE [None]
  - BRONCHITIS [None]
